FAERS Safety Report 9701316 (Version 1)
Quarter: 2013Q4

REPORT INFORMATION
  Report Type: Spontaneous
  Country: US (occurrence: US)
  Receive Date: 20131121
  Receipt Date: 20131121
  Transmission Date: 20140711
  Serious: No
  Sender: FDA-Public Use
  Company Number: US-GILEAD-2008-0016380

PATIENT
  Age: 69 Year
  Sex: Female
  Weight: 82.55 kg

DRUGS (10)
  1. LETAIRIS [Suspect]
     Indication: PULMONARY ARTERIAL HYPERTENSION
     Route: 048
     Dates: start: 20080223
  2. INFED [Concomitant]
     Dosage: AS DIRECTED
     Route: 042
  3. NIACIN [Concomitant]
     Route: 048
  4. CLARITIN [Concomitant]
     Route: 048
  5. PROVIGIL [Concomitant]
     Route: 048
  6. VITAMIN D [Concomitant]
     Route: 048
  7. CHILDRENS ASPIRIN [Concomitant]
     Route: 048
  8. PRILOSEC [Concomitant]
     Route: 048
  9. FISH OIL [Concomitant]
     Route: 048
  10. MULTIVITAMINS [Concomitant]
     Route: 048

REACTIONS (4)
  - Cough [Unknown]
  - Retching [Unknown]
  - Chest pain [Unknown]
  - Dyspnoea [Unknown]
